FAERS Safety Report 5465305-4 (Version None)
Quarter: 2007Q3

REPORT INFORMATION
  Report Type: 
  Country: None (occurrence: None)
  Receive Date: 20070924
  Receipt Date: 20070919
  Transmission Date: 20080115
  Serious: Yes (Other)
  Sender: FDA-Public Use
  Company Number: HQWYE221819SEP07

PATIENT
  Age: 46 Year
  Sex: Male
  Weight: 92.5 kg

DRUGS (3)
  1. GEMTUZUMAB OZOGAMICIN [Suspect]
     Indication: ACUTE MYELOID LEUKAEMIA
     Dosage: 12.9 MG TOTAL DOSE ADMINISTERED
     Route: 042
     Dates: start: 20070906, end: 20070906
  2. DAUNORUBICIN [Concomitant]
     Indication: ACUTE MYELOID LEUKAEMIA
     Dosage: 96 MG TOTAL DOSE ADMINISTERED
     Route: 065
     Dates: start: 20070830, end: 20070901
  3. CYTARABINE [Concomitant]
     Indication: ACUTE MYELOID LEUKAEMIA
     Dosage: 210 MG TOTAL DOSE ADMINISTERED
     Route: 065
     Dates: start: 20070830, end: 20070905

REACTIONS (1)
  - PERICARDIAL EFFUSION [None]
